FAERS Safety Report 7607059-9 (Version None)
Quarter: 2011Q3

REPORT INFORMATION
  Report Type: 
  Country: None (occurrence: None)
  Receive Date: 20110713
  Receipt Date: 20110628
  Transmission Date: 20111222
  Serious: Yes (Other)
  Sender: FDA-Public Use
  Company Number: BE-UCBSA-034866

PATIENT
  Sex: Female
  Weight: 130 kg

DRUGS (3)
  1. VIMPAT [Suspect]
     Indication: PARTIAL SEIZURES
  2. TOPIRAMATE [Concomitant]
  3. KEPPRA [Suspect]
     Indication: PARTIAL SEIZURES

REACTIONS (2)
  - ABORTION SPONTANEOUS [None]
  - PREGNANCY [None]
